FAERS Safety Report 13255318 (Version 4)
Quarter: 2018Q1

REPORT INFORMATION
  Report Type: Spontaneous
  Country: US (occurrence: US)
  Receive Date: 20170221
  Receipt Date: 20180309
  Transmission Date: 20180508
  Serious: Yes (Hospitalization)
  Sender: FDA-Public Use
  Company Number: US-JNJFOC-20170207185

PATIENT
  Sex: Female
  Weight: 79.38 kg

DRUGS (2)
  1. INVEGA SUSTENNA [Suspect]
     Active Substance: PALIPERIDONE PALMITATE
     Indication: SCHIZOPHRENIA
     Route: 030
     Dates: start: 2016
  2. INVEGA SUSTENNA [Suspect]
     Active Substance: PALIPERIDONE PALMITATE
     Indication: SCHIZOPHRENIA
     Route: 030
     Dates: start: 2017

REACTIONS (11)
  - Fungal infection [Not Recovered/Not Resolved]
  - Treatment noncompliance [Unknown]
  - Blood prolactin increased [Unknown]
  - Weight increased [Unknown]
  - Pyrexia [Unknown]
  - Nightmare [Unknown]
  - Tremor [Unknown]
  - Insomnia [Unknown]
  - Hallucination [Unknown]
  - Decreased appetite [Unknown]
  - Hypersomnia [Unknown]

NARRATIVE: CASE EVENT DATE: 2016
